FAERS Safety Report 24073631 (Version 1)
Quarter: 2024Q3

REPORT INFORMATION
  Report Type: Spontaneous
  Country: US (occurrence: None)
  Receive Date: 20240710
  Receipt Date: 20240710
  Transmission Date: 20241016
  Serious: No
  Sender: Public
  Company Number: None

PATIENT
  Sex: 0

DRUGS (2)
  1. TOPAMAX [Suspect]
     Active Substance: TOPIRAMATE
  2. TOPIRAMATE [Suspect]
     Active Substance: TOPIRAMATE

REACTIONS (4)
  - Rash [None]
  - Drug intolerance [None]
  - Abdominal pain upper [None]
  - Migraine [None]
